FAERS Safety Report 7285913-8 (Version None)
Quarter: 2011Q1

REPORT INFORMATION
  Report Type: 
  Country: None (occurrence: None)
  Receive Date: 20110210
  Receipt Date: 20110201
  Transmission Date: 20110831
  Serious: Yes (Other)
  Sender: FDA-Public Use
  Company Number: JP-MERCK-1102USA00639

PATIENT
  Age: 70 Year
  Sex: Male

DRUGS (3)
  1. PEPCID [Suspect]
     Route: 048
  2. CLARITH [Concomitant]
     Route: 048
  3. JANUVIA [Concomitant]
     Route: 048

REACTIONS (1)
  - AGEUSIA [None]
